FAERS Safety Report 4584963-X (Version None)
Quarter: 2005Q1

REPORT INFORMATION
  Report Type: 
  Country: None (occurrence: None)
  Receive Date: 20050217
  Receipt Date: 20041117
  Transmission Date: 20050727
  Serious: No
  Sender: FDA-Public Use
  Company Number: US-GLAXOSMITHKLINE-A0534704A

PATIENT
  Age: 62 Year
  Sex: Female
  Weight: 75.5 kg

DRUGS (6)
  1. WELLBUTRIN XL [Suspect]
     Indication: DRUG USE FOR UNKNOWN INDICATION
     Dosage: 300MG PER DAY
     Route: 048
     Dates: start: 20040501
  2. NABUMETONE [Suspect]
     Indication: DRUG USE FOR UNKNOWN INDICATION
  3. WELLBUTRIN [Suspect]
     Indication: DRUG USE FOR UNKNOWN INDICATION
     Route: 048
  4. WELLBUTRIN SR [Concomitant]
     Indication: DRUG USE FOR UNKNOWN INDICATION
     Dosage: 150MG TWICE PER DAY
     Route: 048
     Dates: start: 20040501
  5. VITAMIN [Concomitant]
  6. MINERAL TAB [Concomitant]

REACTIONS (2)
  - DEPRESSION [None]
  - PAIN [None]
